FAERS Safety Report 23166977 (Version 1)
Quarter: 2023Q4

REPORT INFORMATION
  Report Type: Spontaneous
  Country: IT (occurrence: IT)
  Receive Date: 20231109
  Receipt Date: 20231109
  Transmission Date: 20240110
  Serious: Yes (Other)
  Sender: FDA-Public Use
  Company Number: IT-SUN PHARMACEUTICAL INDUSTRIES LTD-2023RR-417536

PATIENT
  Age: 60 Year
  Sex: Male

DRUGS (1)
  1. OLANZAPINE [Suspect]
     Active Substance: OLANZAPINE
     Indication: Drug abuse
     Dosage: 100 MILLIGRAM, 10 MG
     Route: 048
     Dates: start: 20230630, end: 20230630

REACTIONS (4)
  - Toxicity to various agents [Recovering/Resolving]
  - Drug abuse [Recovering/Resolving]
  - Chest discomfort [Recovering/Resolving]
  - Headache [Recovering/Resolving]

NARRATIVE: CASE EVENT DATE: 20230630
